FAERS Safety Report 14730836 (Version 1)
Quarter: 2018Q2

REPORT INFORMATION
  Report Type: Spontaneous
  Country: US (occurrence: US)
  Receive Date: 20180406
  Receipt Date: 20180406
  Transmission Date: 20180711
  Serious: Yes (Hospitalization)
  Sender: FDA-Public Use
  Company Number: US-BRISTOL-MYERS SQUIBB COMPANY-BMS-2018-027865

PATIENT
  Sex: Female
  Weight: 54.42 kg

DRUGS (1)
  1. COUMADIN [Suspect]
     Active Substance: WARFARIN SODIUM
     Indication: ARTERIAL DISORDER
     Dosage: 15 MG, QD
     Route: 048
     Dates: start: 2010

REACTIONS (3)
  - International normalised ratio abnormal [Not Recovered/Not Resolved]
  - Arterial disorder [Unknown]
  - Product use in unapproved indication [Unknown]
